FAERS Safety Report 14351364 (Version 3)
Quarter: 2018Q2

REPORT INFORMATION
  Report Type: Spontaneous
  Country: US (occurrence: US)
  Receive Date: 20180104
  Receipt Date: 20180412
  Transmission Date: 20180711
  Serious: No
  Sender: FDA-Public Use
  Company Number: US-PFIZER INC-2017552944

PATIENT
  Sex: Male

DRUGS (1)
  1. LYRICA [Suspect]
     Active Substance: PREGABALIN
     Dosage: UNK
     Dates: end: 201712

REACTIONS (6)
  - Loss of personal independence in daily activities [Unknown]
  - Formication [Unknown]
  - Heart rate increased [Unknown]
  - Withdrawal syndrome [Unknown]
  - Malaise [Unknown]
  - Blood pressure abnormal [Unknown]
